FAERS Safety Report 12250400 (Version 2)
Quarter: 2016Q2

REPORT INFORMATION
  Report Type: Spontaneous
  Country: US (occurrence: US)
  Receive Date: 20160408
  Receipt Date: 20160411
  Transmission Date: 20160815
  Serious: Yes (Other)
  Sender: FDA-Public Use
  Company Number: PHHY2016US042668

PATIENT
  Age: 15 Year
  Sex: Female

DRUGS (38)
  1. AZITHROMYCIN ANHYDROUS. [Suspect]
     Active Substance: AZITHROMYCIN ANHYDROUS
     Indication: PRODUCT USED FOR UNKNOWN INDICATION
     Dosage: 300 MG, EVERY MONDAY, WEDNESDAY AND FRIDAY
     Route: 050
  2. MONONESSA [Suspect]
     Active Substance: ETHINYL ESTRADIOL\NORGESTIMATE
     Indication: PRODUCT USED FOR UNKNOWN INDICATION
     Dosage: 1 DF, QD
     Route: 048
  3. DIASTAT [Suspect]
     Active Substance: DIAZEPAM
     Indication: SEIZURE
     Dosage: 50 MG, GEL AS NEEDED FOR SEIZURES LONGER THAN 3 MINUTES
     Route: 054
  4. ZINC OXIDE. [Suspect]
     Active Substance: ZINC OXIDE
     Indication: ANAL PRURITUS
     Dosage: UNK, AS NEEDED FOR G TUBE, J TUBE
     Route: 061
  5. BACITRACIN. [Suspect]
     Active Substance: BACITRACIN
     Indication: PRODUCT USED FOR UNKNOWN INDICATION
     Dosage: UNK, AS NEEDED TO STOMA SITE
     Route: 061
  6. ALBUTEROL SULFATE TABLETS USP [Suspect]
     Active Substance: ALBUTEROL SULFATE
     Indication: RESPIRATORY DISTRESS
     Dosage: 2 DF, QD (2.5MG NEB TWICE DAILY)
     Route: 055
  7. TIZANIDINE. [Suspect]
     Active Substance: TIZANIDINE
     Indication: PRODUCT USED FOR UNKNOWN INDICATION
     Dosage: 1 MG, QID
     Route: 050
  8. DIPHENHYDRAMINE. [Suspect]
     Active Substance: DIPHENHYDRAMINE
     Indication: HYPERSENSITIVITY
  9. CALCIUM CARBONATE. [Suspect]
     Active Substance: CALCIUM CARBONATE
     Indication: PRODUCT USED FOR UNKNOWN INDICATION
     Dosage: 600 MG, QD
     Route: 050
  10. ACETAMINOPHEN (PARACETAMOL), CAFFEINE [Suspect]
     Active Substance: ACETAMINOPHEN\CAFFEINE
     Indication: PAIN
     Dosage: 5 MG, EVERY 6 HOURS AS NEEDED FOR PAIN
     Route: 050
  11. ALBUTEROL SULFATE TABLETS USP [Suspect]
     Active Substance: ALBUTEROL SULFATE
     Dosage: UNK, 2.5MG INHALATION EVERY TWO HOURS AS NEEDED
     Route: 055
  12. DIPHENHYDRAMINE. [Suspect]
     Active Substance: DIPHENHYDRAMINE
     Indication: PRURITUS
  13. GABAPENTIN. [Suspect]
     Active Substance: GABAPENTIN
     Indication: PRODUCT USED FOR UNKNOWN INDICATION
     Dosage: 800 MG, TID
     Route: 050
  14. NYSTATIN. [Suspect]
     Active Substance: NYSTATIN
     Indication: SKIN IRRITATION
     Dosage: UNK, 4 TIMES DAILY AS NEEDED
     Route: 061
  15. GLYCOPYRROLATE. [Suspect]
     Active Substance: GLYCOPYRROLATE
     Indication: PRODUCT USED FOR UNKNOWN INDICATION
     Dosage: 2 MG, QID (2MG IN 1MG/5ML SOLUTION 4 TIMES DAILY)
     Route: 050
  16. PROBIOTIC                          /07343501/ [Suspect]
     Active Substance: BIFIDOBACTERIUM LONGUM\LACTOBACILLUS ACIDOPHILUS
     Indication: PRODUCT USED FOR UNKNOWN INDICATION
     Dosage: 1 DF, QD
     Route: 048
  17. GABITRIL [Suspect]
     Active Substance: TIAGABINE HYDROCHLORIDE
     Indication: PRODUCT USED FOR UNKNOWN INDICATION
     Dosage: 6 MG, QID
     Route: 050
  18. BACLOFEN INTRATHECAL [Suspect]
     Active Substance: BACLOFEN
     Indication: MUSCLE SPASTICITY
     Route: 037
  19. DIAZEPAM. [Suspect]
     Active Substance: DIAZEPAM
     Dosage: UNK, 5MG EVERY 4 HOURS AS NEEDED
     Route: 050
  20. BACLOFEN. [Suspect]
     Active Substance: BACLOFEN
     Indication: DRUG WITHDRAWAL SYNDROME
     Dosage: UNK, 10 MG EVERY 6 HOURS
     Route: 048
  21. LIDOCAINE. [Suspect]
     Active Substance: LIDOCAINE
     Indication: SKIN IRRITATION
     Dosage: UNK, AS NEEDED TO G TUBE STOMA SITE
     Route: 061
  22. CETIRIZINE [Suspect]
     Active Substance: CETIRIZINE HYDROCHLORIDE
     Indication: PRODUCT USED FOR UNKNOWN INDICATION
     Dosage: 10 MG, QD
     Route: 050
  23. SUCRALFATE. [Suspect]
     Active Substance: SUCRALFATE
     Indication: PRODUCT USED FOR UNKNOWN INDICATION
     Dosage: 500 MG, QID
     Route: 050
  24. ZINC OXIDE. [Suspect]
     Active Substance: ZINC OXIDE
     Indication: ANORECTAL DISCOMFORT
  25. CALCIUM CARBONATE. [Suspect]
     Active Substance: CALCIUM CARBONATE
     Indication: PRODUCT USED FOR UNKNOWN INDICATION
  26. BUDESONIDE. [Suspect]
     Active Substance: BUDESONIDE
     Indication: PRODUCT USED FOR UNKNOWN INDICATION
     Dosage: 2 DF, QD 0.5MG SUSPENSION INHALATION TWICE DAILY
     Route: 055
  27. LIDOCAINE. [Suspect]
     Active Substance: LIDOCAINE
     Dosage: UNK,2PERCENT AS NEEDED FOR CATHETERIZATION EVERY 4 HOURS
     Route: 061
  28. MUPIROCIN. [Suspect]
     Active Substance: MUPIROCIN
     Indication: PRODUCT USED FOR UNKNOWN INDICATION
     Dosage: UNK,AS NEEDED TO THE STOMA SITE
     Route: 061
  29. SIMETHICONE (DIMETHICONE) [Suspect]
     Active Substance: DIMETHICONE
     Indication: PRODUCT USED FOR UNKNOWN INDICATION
     Dosage: 40 MG, QID
     Route: 050
  30. DIAZEPAM. [Suspect]
     Active Substance: DIAZEPAM
     Indication: MUSCLE SPASMS
     Dosage: 5 MG, QD
     Route: 050
  31. CLOTRIMAZOLE. [Suspect]
     Active Substance: CLOTRIMAZOLE
     Indication: RASH
  32. DIPHENHYDRAMINE. [Suspect]
     Active Substance: DIPHENHYDRAMINE
     Indication: INSOMNIA
     Dosage: 25 MG, EVERY 6 HOURS AS NEEDED
     Route: 050
  33. DUONEB [Suspect]
     Active Substance: ALBUTEROL SULFATE\IPRATROPIUM BROMIDE
     Indication: WHEEZING
     Dosage: 3 ML, EVERY 4 HOURS AS NEEDED
     Route: 055
  34. CLOTRIMAZOLE. [Suspect]
     Active Substance: CLOTRIMAZOLE
     Indication: PRURITUS
     Dosage: UNK, 4 TIMES DAILY AS NEEDED
     Route: 061
  35. LAMOTRIGINE. [Suspect]
     Active Substance: LAMOTRIGINE
     Indication: PRODUCT USED FOR UNKNOWN INDICATION
     Dosage: 200 MG, TID
     Route: 050
  36. LORAZEPAM. [Suspect]
     Active Substance: LORAZEPAM
     Indication: SEIZURE
     Dosage: UNK, 0.25MG TO 1 MG AS NEEDED
     Route: 050
  37. OMEPRAZOLE. [Suspect]
     Active Substance: OMEPRAZOLE
     Indication: PRODUCT USED FOR UNKNOWN INDICATION
     Dosage: 60 MG, BID
     Route: 050
  38. MELATONIN [Suspect]
     Active Substance: MELATONIN
     Indication: PRODUCT USED FOR UNKNOWN INDICATION
     Dosage: 3 MG, QD AT BEDTIME
     Route: 050

REACTIONS (3)
  - Swelling [Unknown]
  - Implant site swelling [Unknown]
  - Infection [Recovered/Resolved]

NARRATIVE: CASE EVENT DATE: 20160318
